FAERS Safety Report 10290747 (Version 1)
Quarter: 2014Q3

REPORT INFORMATION
  Report Type: Spontaneous
  Country: GB (occurrence: None)
  Receive Date: 20140708
  Receipt Date: 20140708
  Transmission Date: 20150326
  Serious: Yes (Hospitalization, Disabling)
  Sender: FDA-Public Use
  Company Number: AUR-APL-2014-07032

PATIENT
  Age: 66 Year
  Sex: Male
  Weight: 62 kg

DRUGS (7)
  1. GABAPENTIN (GABAPENTIN) [Concomitant]
     Active Substance: GABAPENTIN
  2. LETROZOLE (LETROZOLE) [Concomitant]
     Active Substance: LETROZOLE
  3. TAMOXIFEN [Concomitant]
     Active Substance: TAMOXIFEN
  4. ARIMIDEX [Concomitant]
     Active Substance: ANASTROZOLE
  5. RABEPRAZOLE [Concomitant]
     Active Substance: RABEPRAZOLE
  6. MORPHINE [Concomitant]
     Active Substance: MORPHINE
  7. ALENDRONIC ACID (ALENDRONIC ACID) UNKNOWN, UNKNOWN [Suspect]
     Active Substance: ALENDRONIC ACID
     Indication: OSTEOPOROSIS
     Dates: start: 2006, end: 2014

REACTIONS (2)
  - Lower limb fracture [None]
  - Nail disorder [None]
